FAERS Safety Report 7816652-X (Version None)
Quarter: 2011Q4

REPORT INFORMATION
  Report Type: 
  Country: None (occurrence: None)
  Receive Date: 20111017
  Receipt Date: 20111007
  Transmission Date: 20120403
  Serious: Yes (Other)
  Sender: FDA-Public Use
  Company Number: CH-US-EMD SERONO, INC.-7088028

PATIENT
  Sex: Male
  Weight: 76 kg

DRUGS (4)
  1. PK-MERZ [Concomitant]
     Indication: MULTIPLE SCLEROSIS
     Dates: end: 20110901
  2. TIZANIDINE HCL [Concomitant]
     Indication: MULTIPLE SCLEROSIS
     Dates: end: 20110901
  3. REBIF [Suspect]
     Indication: MULTIPLE SCLEROSIS
     Dates: start: 20030601
  4. CITALOPRAM [Concomitant]
     Indication: MOOD ALTERED

REACTIONS (2)
  - HYPERCHOLESTEROLAEMIA [None]
  - CAROTID ARTERY STENOSIS [None]
